FAERS Safety Report 26100956 (Version 1)
Quarter: 2025Q4

REPORT INFORMATION
  Report Type: Spontaneous
  Country: GB (occurrence: GB)
  Receive Date: 20251128
  Receipt Date: 20251128
  Transmission Date: 20260117
  Serious: Yes (Other)
  Sender: AUROBINDO
  Company Number: GB-MHRA-MED-202511170653487190-GCTKW

PATIENT
  Age: 63 Year
  Sex: Female
  Weight: 58 kg

DRUGS (2)
  1. AMLODIPINE [Suspect]
     Active Substance: AMLODIPINE BESYLATE
     Indication: Adverse drug reaction
     Dosage: 5 MILLIGRAM
     Route: 065
     Dates: start: 20251113, end: 20251117
  2. OMEPRAZOLE [Concomitant]
     Active Substance: OMEPRAZOLE
     Indication: Barrett^s oesophagus
     Dosage: UNK
     Route: 065

REACTIONS (1)
  - Throat irritation [Not Recovered/Not Resolved]

NARRATIVE: CASE EVENT DATE: 20251117
